FAERS Safety Report 10146377 (Version 3)
Quarter: 2014Q3

REPORT INFORMATION
  Report Type: Spontaneous
  Country: US (occurrence: US)
  Receive Date: 20140501
  Receipt Date: 20140724
  Transmission Date: 20150326
  Serious: Yes (Life-Threatening, Hospitalization, Other)
  Sender: FDA-Public Use
  Company Number: US-BAYER-2014-062912

PATIENT
  Age: 30 Year
  Sex: Female
  Weight: 90.7 kg

DRUGS (3)
  1. TRIAMCINOLON [Concomitant]
     Dosage: UNK UNK, PRN, TO INCISION
     Dates: start: 20130528
  2. MIRENA [Suspect]
     Active Substance: LEVONORGESTREL
     Indication: CONTRACEPTION
     Dosage: 20 MCG/24HR, CONT
     Route: 015
     Dates: start: 20130528, end: 20130604
  3. CIPRO [Concomitant]
     Active Substance: CIPROFLOXACIN HYDROCHLORIDE
     Dosage: 500 MG, BID
     Dates: start: 20130528

REACTIONS (11)
  - Injury [None]
  - Medical device discomfort [None]
  - Off label use [None]
  - Abscess [None]
  - Depression [None]
  - General physical health deterioration [None]
  - Pain [None]
  - Anhedonia [None]
  - Device dislocation [None]
  - Anxiety [None]
  - Emotional distress [None]

NARRATIVE: CASE EVENT DATE: 201306
